FAERS Safety Report 7033656-8 (Version None)
Quarter: 2010Q4

REPORT INFORMATION
  Report Type: 
  Country: None (occurrence: None)
  Receive Date: 20101007
  Receipt Date: 20100927
  Transmission Date: 20110411
  Serious: Yes (Other)
  Sender: FDA-Public Use
  Company Number: AU-GILEAD-2010-0031798

PATIENT
  Sex: Male
  Weight: 69 kg

DRUGS (4)
  1. ADEFOVIR DIPIVOXIL KIT [Suspect]
     Indication: HEPATITIS B
     Dates: start: 20060310
  2. VIREAD [Suspect]
     Indication: HEPATITIS B
     Route: 048
     Dates: start: 20100205
  3. LAMIVUDINE [Concomitant]
     Indication: HEPATITIS B
     Route: 048
     Dates: start: 20080111
  4. FISH OIL [Concomitant]
     Indication: ARTHRALGIA
     Dates: start: 20100430

REACTIONS (2)
  - RENAL TUBULAR NECROSIS [None]
  - TRANSAMINASES INCREASED [None]
